FAERS Safety Report 10551473 (Version 1)
Quarter: 2014Q4

REPORT INFORMATION
  Report Type: Spontaneous
  Country: US (occurrence: None)
  Receive Date: 20141020
  Receipt Date: 20141020
  Transmission Date: 20150529
  Serious: No
  Sender: FDA-Public Use
  Company Number: AEGR000716

PATIENT
  Age: 44 Year
  Sex: Female
  Weight: 100.2 kg

DRUGS (3)
  1. SIMVASTATIN. [Concomitant]
     Active Substance: SIMVASTATIN
  2. JUXTAPID [Suspect]
     Active Substance: LOMITAPIDE MESYLATE
     Indication: TYPE IIA HYPERLIPIDAEMIA
     Route: 048
     Dates: start: 20140829
  3. LOVAZA (OMEGA-3-ACID-ETHYL ESTER) [Concomitant]

REACTIONS (3)
  - Asthenia [None]
  - Malaise [None]
  - Fatigue [None]

NARRATIVE: CASE EVENT DATE: 20140830
